FAERS Safety Report 7653092-0 (Version None)
Quarter: 2011Q3

REPORT INFORMATION
  Report Type: 
  Country: None (occurrence: None)
  Receive Date: 20110802
  Receipt Date: 20110802
  Transmission Date: 20111222
  Serious: Yes (Other)
  Sender: FDA-Public Use
  Company Number: None

PATIENT
  Sex: Female
  Weight: 103.8737 kg

DRUGS (2)
  1. ATENOLOL [Suspect]
     Indication: HYPERTENSION
     Dosage: ATENOLOL (GENERIC) BID PO
     Route: 048
     Dates: start: 20050101
  2. TRIAMTERENE AND HYDROCHLOROTHIAZIDE [Suspect]
     Indication: HYPERTENSION
     Dosage: TRIAMTERENE/HCTZ (GENERIC) EVERY DAY PO
     Route: 048
     Dates: start: 20050101

REACTIONS (4)
  - COUGH [None]
  - SWELLING [None]
  - PRURITUS [None]
  - HYPERSENSITIVITY [None]
